FAERS Safety Report 6628756-8 (Version None)
Quarter: 2010Q1

REPORT INFORMATION
  Report Type: 
  Country: None (occurrence: None)
  Receive Date: 20100311
  Receipt Date: 20100309
  Transmission Date: 20100710
  Serious: Yes (Other)
  Sender: FDA-Public Use
  Company Number: CHPA2010US03943

PATIENT
  Age: 45 Month
  Sex: Female
  Weight: 16.78 kg

DRUGS (4)
  1. MAALOX MS TOTAL STOMACH RELIEF (NCH) [Suspect]
     Indication: ABDOMINAL PAIN UPPER
     Dosage: UNK, UNK
     Route: 048
     Dates: start: 20100216, end: 20100222
  2. MAALOX MS TOTAL STOMACH RELIEF (NCH) [Suspect]
     Dosage: .5 TSP, PRN
     Route: 048
  3. TYLENOL-500 [Suspect]
     Indication: PYREXIA
     Dosage: UNK
     Dates: start: 20100211
  4. MOTRIN [Suspect]
     Indication: PYREXIA
     Dosage: UNK
     Dates: start: 20100211

REACTIONS (9)
  - ABDOMINAL PAIN UPPER [None]
  - ABDOMINAL RIGIDITY [None]
  - CONDITION AGGRAVATED [None]
  - FATIGUE [None]
  - INCORRECT DOSE ADMINISTERED [None]
  - LETHARGY [None]
  - OFF LABEL USE [None]
  - OVERDOSE [None]
  - PNEUMONIA [None]
